FAERS Safety Report 16442049 (Version 1)
Quarter: 2019Q2

REPORT INFORMATION
  Report Type: Report from Study
  Country: None (occurrence: US)
  Receive Date: 20190617
  Receipt Date: 20190617
  Transmission Date: 20190711
  Serious: No
  Sender: FDA-Public Use
  Company Number: US-US WORLDMEDS, LLC-USW201811-001820

PATIENT
  Age: 61 Year
  Sex: Female

DRUGS (8)
  1. APOKYN [Suspect]
     Active Substance: APOMORPHINE HYDROCHLORIDE
     Route: 058
     Dates: start: 20180905
  2. DULOXETINE. [Concomitant]
     Active Substance: DULOXETINE
  3. TIGAN [Concomitant]
     Active Substance: TRIMETHOBENZAMIDE HYDROCHLORIDE
  4. SINEMET [Concomitant]
     Active Substance: CARBIDOPA\LEVODOPA
     Indication: PARKINSON^S DISEASE
     Dosage: 25/100 MG 2 TABLETS EVERY THREE HOURS,
  5. SINEMET [Concomitant]
     Active Substance: CARBIDOPA\LEVODOPA
     Dosage: 25/100
  6. VITAMIN D [Concomitant]
     Active Substance: VITAMIN D NOS
  7. APOKYN [Suspect]
     Active Substance: APOMORPHINE HYDROCHLORIDE
     Indication: PARKINSON^S DISEASE
     Route: 058
     Dates: start: 20181126
  8. ROPINIROLE. [Concomitant]
     Active Substance: ROPINIROLE

REACTIONS (7)
  - Musculoskeletal stiffness [Unknown]
  - Malaise [Unknown]
  - Speech disorder [Unknown]
  - Panic reaction [Recovered/Resolved]
  - Feeling abnormal [Unknown]
  - Stiff tongue [Unknown]
  - Drug ineffective [Unknown]

NARRATIVE: CASE EVENT DATE: 201811
